FAERS Safety Report 16776855 (Version 4)
Quarter: 2019Q3

REPORT INFORMATION
  Report Type: Spontaneous
  Country: US (occurrence: US)
  Receive Date: 20190905
  Receipt Date: 20190927
  Transmission Date: 20191005
  Serious: Yes (Hospitalization)
  Sender: FDA-Public Use
  Company Number: US-BAYER-2019-163538

PATIENT
  Age: 41 Year
  Sex: Female
  Weight: 86.17 kg

DRUGS (2)
  1. CLARITIN [Suspect]
     Active Substance: LORATADINE
     Indication: ALLERGIC RESPIRATORY SYMPTOM
     Dosage: 1 DF, ONCE
     Route: 048
     Dates: start: 20190904, end: 20190904
  2. CLARITIN [Suspect]
     Active Substance: LORATADINE
     Indication: NASOPHARYNGITIS

REACTIONS (10)
  - Aphonia [Recovered/Resolved]
  - Throat tightness [Unknown]
  - Eye irritation [Recovered/Resolved]
  - Skin burning sensation [Recovered/Resolved]
  - Laryngitis [Recovered/Resolved]
  - Product use complaint [None]
  - Hypersensitivity [None]
  - Chest pain [None]
  - Dysphonia [Not Recovered/Not Resolved]
  - Lethargy [None]

NARRATIVE: CASE EVENT DATE: 20190904
